FAERS Safety Report 10616191 (Version 1)
Quarter: 2014Q4

REPORT INFORMATION
  Report Type: Spontaneous
  Country: US (occurrence: None)
  Receive Date: 20141126
  Receipt Date: 20141126
  Transmission Date: 20150529
  Serious: Yes (Other)
  Sender: FDA-Public Use
  Company Number: None

PATIENT
  Age: 8 Year
  Sex: Female
  Weight: 22.3 kg

DRUGS (2)
  1. AMIKACIN [Suspect]
     Active Substance: AMIKACIN
     Indication: CYSTIC FIBROSIS
     Route: 042
     Dates: start: 20140703, end: 20141119
  2. IMIPENEM [Concomitant]
     Active Substance: IMIPENEM

REACTIONS (1)
  - Deafness [None]

NARRATIVE: CASE EVENT DATE: 20141121
